FAERS Safety Report 16964617 (Version 1)
Quarter: 2019Q4

REPORT INFORMATION
  Report Type: Spontaneous
  Country: US (occurrence: US)
  Receive Date: 20191028
  Receipt Date: 20191028
  Transmission Date: 20200122
  Serious: No
  Sender: FDA-Public Use
  Company Number: US-009507513-1910USA013130

PATIENT
  Age: 19 Year
  Sex: Female
  Weight: 68.03 kg

DRUGS (1)
  1. NEXPLANON [Suspect]
     Active Substance: ETONOGESTREL
     Indication: CONTRACEPTION
     Dosage: EVERY 4 YEARS, LEFT ARM
     Route: 059
     Dates: start: 20180216

REACTIONS (2)
  - Vaginal haemorrhage [Not Recovered/Not Resolved]
  - Circumstance or information capable of leading to medication error [Unknown]
